FAERS Safety Report 8152732-X (Version None)
Quarter: 2012Q1

REPORT INFORMATION
  Report Type: 
  Country: None (occurrence: None)
  Receive Date: 20120221
  Receipt Date: 20120210
  Transmission Date: 20120608
  Serious: Yes (Disabling)
  Sender: FDA-Public Use
  Company Number: JP-JNJFOC-20111010268

PATIENT
  Sex: Female

DRUGS (4)
  1. REMICADE [Suspect]
     Route: 042
     Dates: start: 20101002
  2. REMICADE [Suspect]
     Route: 042
     Dates: start: 20111003
  3. REMICADE [Suspect]
     Route: 042
     Dates: start: 20110114
  4. REMICADE [Suspect]
     Indication: PSORIASIS
     Route: 042
     Dates: start: 20110812

REACTIONS (1)
  - LUPUS-LIKE SYNDROME [None]
